FAERS Safety Report 23949251 (Version 1)
Quarter: 2024Q2

REPORT INFORMATION
  Report Type: Report from Study
  Country: CO (occurrence: CO)
  Receive Date: 20240607
  Receipt Date: 20240607
  Transmission Date: 20240716
  Serious: Yes (Hospitalization)
  Sender: FDA-Public Use
  Company Number: CO-AstraZeneca-2024-214989

PATIENT
  Age: 47 Day
  Sex: Male

DRUGS (1)
  1. SYNAGIS [Suspect]
     Active Substance: PALIVIZUMAB
     Indication: Respiratory rate
     Dosage: MONTHLY
     Route: 030
     Dates: start: 20240419

REACTIONS (2)
  - Influenza like illness [Not Recovered/Not Resolved]
  - Oxygen saturation decreased [Not Recovered/Not Resolved]

NARRATIVE: CASE EVENT DATE: 20240523
